FAERS Safety Report 6025199-5 (Version None)
Quarter: 2008Q4

REPORT INFORMATION
  Report Type: 
  Country: None (occurrence: None)
  Receive Date: 20081229
  Receipt Date: 20081229
  Transmission Date: 20090506
  Serious: Yes (Other)
  Sender: FDA-Public Use
  Company Number: None

PATIENT
  Sex: Male
  Weight: 25.4014 kg

DRUGS (1)
  1. AMPHETAMINE 5MG BARR [Suspect]
     Indication: ATTENTION DEFICIT/HYPERACTIVITY DISORDER
     Dosage: 5MG 1X/DAY PO
     Route: 048
     Dates: start: 20081223, end: 20081227

REACTIONS (6)
  - ABDOMINAL PAIN UPPER [None]
  - AFFECTIVE DISORDER [None]
  - ANGER [None]
  - BELLIGERENCE [None]
  - DYSGEUSIA [None]
  - IRRITABILITY [None]
